FAERS Safety Report 9912040 (Version 1)
Quarter: 2014Q1

REPORT INFORMATION
  Report Type: Spontaneous
  Country: US (occurrence: US)
  Receive Date: 20140219
  Receipt Date: 20140219
  Transmission Date: 20141002
  Serious: No
  Sender: FDA-Public Use
  Company Number: US-009507513-1402USA007698

PATIENT
  Sex: Female

DRUGS (3)
  1. REBETOL [Suspect]
     Indication: HEPATITIS C
     Dosage: 4 PILLS (STRENGTH:200 MG) DAILY
     Route: 048
     Dates: start: 20100920
  2. REBETOL [Suspect]
     Dosage: 2 PILLS (STRENGTH:200 MG) DAILY
     Route: 048
     Dates: end: 20111101
  3. TELAPREVIR [Suspect]
     Indication: HEPATITIS C
     Dosage: UNK
     Route: 048
     Dates: start: 20100920, end: 20111101

REACTIONS (2)
  - Hepatitis B DNA increased [Unknown]
  - Haemoglobin decreased [Unknown]
